FAERS Safety Report 17445882 (Version 2)
Quarter: 2020Q1

REPORT INFORMATION
  Report Type: Report from Study
  Country: None (occurrence: IL)
  Receive Date: 20200221
  Receipt Date: 20200312
  Transmission Date: 20200409
  Serious: Yes (Hospitalization)
  Sender: FDA-Public Use
  Company Number: IL-ABBVIE-20K-082-3284396-00

PATIENT
  Age: 54 Year
  Sex: Female

DRUGS (1)
  1. DUODOPA [Suspect]
     Active Substance: CARBIDOPA\LEVODOPA
     Indication: PARKINSON^S DISEASE
     Dosage: CURRENT: MORNING DOSE 8ML,?CONTINUOUS DOSE 2.9ML/HOUR,?EXTRA DOSE 1.5ML
     Route: 050
     Dates: start: 20200106

REACTIONS (3)
  - Bezoar [Recovering/Resolving]
  - Haematemesis [Not Recovered/Not Resolved]
  - Gastrointestinal disorder [Recovering/Resolving]

NARRATIVE: CASE EVENT DATE: 20200216
